FAERS Safety Report 23719505 (Version 1)
Quarter: 2024Q2

REPORT INFORMATION
  Report Type: Spontaneous
  Country: US (occurrence: US)
  Receive Date: 20240408
  Receipt Date: 20240408
  Transmission Date: 20240716
  Serious: No
  Sender: FDA-Public Use
  Company Number: US-SANDOZ-SDZ2024US036864

PATIENT
  Sex: Female

DRUGS (13)
  1. PANTOPRAZOLE [Suspect]
     Active Substance: PANTOPRAZOLE
     Indication: Prophylaxis against gastrointestinal ulcer
     Dosage: 40 MG, QD
     Route: 065
     Dates: start: 2023
  2. TACROLIMUS [Suspect]
     Active Substance: TACROLIMUS
     Indication: Transplant rejection
     Dosage: 8 MG, QD
     Route: 065
     Dates: start: 2018
  3. MYFORTIC [Suspect]
     Active Substance: MYCOPHENOLATE SODIUM
     Indication: Liver transplant
     Dosage: 1440 MG, QD (720 MG, BID)
     Route: 048
     Dates: start: 2022, end: 20240328
  4. DAPSONE [Suspect]
     Active Substance: DAPSONE
     Indication: Pneumonia
     Dosage: 20 MG, QD
     Route: 065
     Dates: start: 2023
  5. DAPSONE [Suspect]
     Active Substance: DAPSONE
     Indication: Prophylaxis
  6. CLOTRIMAZOLE [Suspect]
     Active Substance: CLOTRIMAZOLE
     Indication: Candida infection
     Dosage: 20 MG, QD
     Route: 065
     Dates: start: 2013
  7. CLOTRIMAZOLE [Suspect]
     Active Substance: CLOTRIMAZOLE
     Indication: Prophylaxis
  8. CALCIUM\CHOLECALCIFEROL [Suspect]
     Active Substance: CALCIUM\CHOLECALCIFEROL
     Indication: Liver transplant
     Dosage: 1000 UG, QD (500 UG, BID)
     Route: 065
     Dates: start: 2018
  9. CALCIUM\CHOLECALCIFEROL [Suspect]
     Active Substance: CALCIUM\CHOLECALCIFEROL
     Indication: Bone density abnormal
  10. PREDNISONE [Suspect]
     Active Substance: PREDNISONE
     Indication: Transplant rejection
     Dosage: 30 MG, QD
     Route: 065
     Dates: start: 2018
  11. SIROLIMUS [Suspect]
     Active Substance: SIROLIMUS
     Indication: Transplant rejection
     Dosage: 2 MG, QD
     Route: 065
     Dates: start: 2020
  12. URSODIOL [Suspect]
     Active Substance: URSODIOL
     Indication: Product used for unknown indication
     Dosage: 600 MG, QD
     Route: 065
     Dates: start: 2018
  13. VALCYTE [Suspect]
     Active Substance: VALGANCICLOVIR HYDROCHLORIDE
     Indication: Product used for unknown indication
     Dosage: 450 MG, QD
     Route: 065
     Dates: start: 2018

REACTIONS (1)
  - Exposure during pregnancy [Unknown]
